FAERS Safety Report 19907061 (Version 1)
Quarter: 2021Q4

REPORT INFORMATION
  Report Type: Report from Study
  Country: IT (occurrence: IT)
  Receive Date: 20211001
  Receipt Date: 20211001
  Transmission Date: 20220303
  Serious: Yes (Other)
  Sender: FDA-Public Use
  Company Number: None

PATIENT
  Age: 42 Year
  Sex: Male

DRUGS (3)
  1. AMOXICILLIN [Suspect]
     Active Substance: AMOXICILLIN
     Route: 065
     Dates: start: 20210905
  2. ASPIRIN [Concomitant]
     Active Substance: ASPIRIN
  3. CLOPIDOGREL [Concomitant]
     Active Substance: CLOPIDOGREL BISULFATE

REACTIONS (4)
  - Oedema [Recovering/Resolving]
  - Skin reaction [Recovering/Resolving]
  - Hypersensitivity [Recovering/Resolving]
  - Hypotension [Recovering/Resolving]

NARRATIVE: CASE EVENT DATE: 20210905
